FAERS Safety Report 8600111-0 (Version None)
Quarter: 2012Q3

REPORT INFORMATION
  Report Type: 
  Country: None (occurrence: None)
  Receive Date: 20120817
  Receipt Date: 20120809
  Transmission Date: 20120928
  Serious: Yes (Other)
  Sender: FDA-Public Use
  Company Number: GB-AMGEN-GBRSP2012042341

PATIENT
  Sex: Male
  Weight: 100 kg

DRUGS (2)
  1. NEO-MERCAZOLE TAB [Concomitant]
     Indication: HYPERTHYROIDISM
     Dosage: 10 MG, UNK
     Route: 048
  2. NPLATE [Suspect]
     Indication: THROMBOCYTOPENIA
     Dosage: 10 MUG/KG, UNK
     Dates: start: 20110526

REACTIONS (1)
  - THERAPEUTIC RESPONSE DECREASED [None]
